APPROVED DRUG PRODUCT: AFEDITAB CR
Active Ingredient: NIFEDIPINE
Strength: 30MG
Dosage Form/Route: TABLET, EXTENDED RELEASE;ORAL
Application: A075128 | Product #001
Applicant: WATSON LABORATORIES INC AN INDIRECT WHOLLY OWNED SUB OF TEVA PHARMACEUTICALS USA INC
Approved: Mar 10, 2000 | RLD: No | RS: No | Type: DISCN